FAERS Safety Report 6329655-1 (Version None)
Quarter: 2009Q3

REPORT INFORMATION
  Report Type: 
  Country: None (occurrence: None)
  Receive Date: 20090826
  Receipt Date: 20090727
  Transmission Date: 20100115
  Serious: No
  Sender: FDA-Public Use
  Company Number: US-BAYER-200913000BCC

PATIENT
  Age: 59 Year
  Sex: Female

DRUGS (1)
  1. FINACEA [Suspect]
     Indication: DRUG USE FOR UNKNOWN INDICATION
     Route: 065
     Dates: start: 20090202

REACTIONS (1)
  - NO ADVERSE EVENT [None]
